FAERS Safety Report 25139992 (Version 9)
Quarter: 2025Q3

REPORT INFORMATION
  Report Type: Spontaneous
  Country: None (occurrence: CA)
  Receive Date: 20250331
  Receipt Date: 20250813
  Transmission Date: 20251021
  Serious: Yes (Other)
  Sender: MYLAN
  Company Number: CA-MYLANLABS-2025M1026556

PATIENT
  Age: 67 Year
  Sex: Female

DRUGS (3)
  1. REVATIO [Suspect]
     Active Substance: SILDENAFIL CITRATE
     Indication: Connective tissue disorder
     Dosage: 20 MILLIGRAM, TID (THREE TIMES A DAY)
     Dates: start: 20230531
  2. AMBRISENTAN [Concomitant]
     Active Substance: AMBRISENTAN
  3. UPTRAVI [Concomitant]
     Active Substance: SELEXIPAG

REACTIONS (17)
  - Fatigue [Unknown]
  - Throat irritation [Recovering/Resolving]
  - Swelling face [Unknown]
  - Condition aggravated [Unknown]
  - Eye infection [Unknown]
  - Dyspepsia [Recovering/Resolving]
  - Dizziness [Unknown]
  - Bone pain [Unknown]
  - Decreased appetite [Unknown]
  - Pruritus [Unknown]
  - Pain [Not Recovered/Not Resolved]
  - Poor quality sleep [Unknown]
  - Dyspnoea [Not Recovered/Not Resolved]
  - Cough [Unknown]
  - Abdominal pain upper [Unknown]
  - Rash pruritic [Unknown]
  - Rash [Not Recovered/Not Resolved]

NARRATIVE: CASE EVENT DATE: 20250731
